FAERS Safety Report 7290065-4 (Version None)
Quarter: 2011Q1

REPORT INFORMATION
  Report Type: 
  Country: None (occurrence: None)
  Receive Date: 20110214
  Receipt Date: 20110131
  Transmission Date: 20110831
  Serious: Yes (Hospitalization, Disabling)
  Sender: FDA-Public Use
  Company Number: US-ELI_LILLY_AND_COMPANY-US201007000558

PATIENT
  Sex: Female
  Weight: 90.703 kg

DRUGS (4)
  1. BYETTA [Suspect]
     Dosage: UNK, UNKNOWN
     Dates: start: 20070417, end: 20090814
  2. NOVOLOG MIX 70/30 [Concomitant]
     Indication: DIABETES MELLITUS
  3. LEXAPRO [Concomitant]
     Indication: DEPRESSION
     Dosage: 2 MG, UNK
  4. AMBIEN [Concomitant]
     Indication: SLEEP DISORDER

REACTIONS (5)
  - RENAL DISORDER [None]
  - CHOLELITHIASIS [None]
  - OFF LABEL USE [None]
  - INJURY [None]
  - PANCREATITIS [None]
